FAERS Safety Report 11099237 (Version 3)
Quarter: 2015Q3

REPORT INFORMATION
  Report Type: Report from Study
  Country: FR (occurrence: FR)
  Receive Date: 20150508
  Receipt Date: 20150929
  Transmission Date: 20151125
  Serious: Yes (Hospitalization)
  Sender: FDA-Public Use
  Company Number: FR-JNJFOC-20150500094

PATIENT
  Age: 53 Year
  Sex: Female
  Weight: 89 kg

DRUGS (3)
  1. TMC125 [Suspect]
     Active Substance: ETRAVIRINE
     Indication: HIV INFECTION
     Route: 048
     Dates: start: 20150312, end: 20150423
  2. RALTEGRAVIR. [Suspect]
     Active Substance: RALTEGRAVIR
     Indication: HIV INFECTION
     Route: 065
     Dates: start: 20150312, end: 20150423
  3. CLOPIXOL [Concomitant]
     Active Substance: ZUCLOPENTHIXOL ACETATE
     Route: 048
     Dates: start: 20020615

REACTIONS (3)
  - Agitation [Unknown]
  - Persecutory delusion [Unknown]
  - Delirium [Unknown]

NARRATIVE: CASE EVENT DATE: 20150422
